FAERS Safety Report 9842836 (Version 1)
Quarter: 2014Q1

REPORT INFORMATION
  Report Type: Spontaneous
  Country: US (occurrence: US)
  Receive Date: 20140124
  Receipt Date: 20140124
  Transmission Date: 20141002
  Serious: Yes (Other)
  Sender: FDA-Public Use
  Company Number: US-ABBVIE-14P-163-1192000-00

PATIENT
  Sex: Male
  Weight: 54.48 kg

DRUGS (4)
  1. ANDROGEL [Suspect]
     Indication: BLOOD TESTOSTERONE DECREASED
     Dosage: 1 PUMP EACH SIDE ON THE ARM AND SHOULDER
     Dates: start: 2009, end: 2011
  2. ANDROGEL [Suspect]
     Indication: BLOOD TESTOSTERONE DECREASED
     Dosage: 1 PUMP EACH SIDE ON ARM AND SHOULDER
     Dates: start: 2011, end: 201306
  3. CALCIUM PLUS VITAMIN D [Concomitant]
     Indication: BONE DENSITY DECREASED
  4. I-CAP VITAMIN [Concomitant]
     Indication: VITAMIN SUPPLEMENTATION

REACTIONS (2)
  - Cataract [Recovered/Resolved]
  - Prostatic specific antigen increased [Recovered/Resolved]
